FAERS Safety Report 16344979 (Version 1)
Quarter: 2019Q2

REPORT INFORMATION
  Report Type: Spontaneous
  Country: US (occurrence: US)
  Receive Date: 20190522
  Receipt Date: 20190522
  Transmission Date: 20190711
  Serious: No
  Sender: FDA-Public Use
  Company Number: US-CELGENEUS-USA-20190505951

PATIENT
  Age: 56 Year
  Sex: Female

DRUGS (1)
  1. OTEZLA [Suspect]
     Active Substance: APREMILAST
     Indication: PRODUCT USED FOR UNKNOWN INDICATION
     Route: 048
     Dates: start: 20180618, end: 20180620

REACTIONS (5)
  - Anxiety [Unknown]
  - Decreased appetite [Unknown]
  - Fatigue [Unknown]
  - Dysarthria [Unknown]
  - Dizziness [Unknown]

NARRATIVE: CASE EVENT DATE: 20180620
